FAERS Safety Report 5526158-9 (Version None)
Quarter: 2007Q4

REPORT INFORMATION
  Report Type: 
  Country: None (occurrence: None)
  Receive Date: 20071120
  Receipt Date: 20071107
  Transmission Date: 20080405
  Serious: No
  Sender: FDA-Public Use
  Company Number: B0495681A

PATIENT
  Age: 48 Year
  Sex: Male

DRUGS (5)
  1. CHLORPROMAZINE HCL [Suspect]
     Indication: SCHIZOPHRENIA
     Dosage: FOR YEARS
  2. ADRENALINE [Concomitant]
  3. CYCLOPENTOLATE HCL [Concomitant]
  4. TROPICAMIDE [Concomitant]
  5. PHENYLEPHRINE HC1 [Concomitant]

REACTIONS (3)
  - CATARACT NUCLEAR [None]
  - FLOPPY IRIS SYNDROME [None]
  - MIOSIS [None]
